FAERS Safety Report 9023153 (Version 1)
Quarter: 2013Q1

REPORT INFORMATION
  Report Type: Spontaneous
  Country: US (occurrence: US)
  Receive Date: 20130120
  Receipt Date: 20130120
  Transmission Date: 20140127
  Serious: No
  Sender: FDA-Public Use
  Company Number: US-ALLERGAN-1214847US

PATIENT
  Age: 45 Year
  Sex: Female

DRUGS (10)
  1. BOTOX COSMETIC [Suspect]
     Indication: SKIN WRINKLING
     Dosage: UNK UNK, SINGLE
     Route: 030
     Dates: start: 20120616, end: 20120616
  2. FILLER NOS [Concomitant]
     Indication: SKIN COSMETIC PROCEDURE
  3. MICARDIS [Concomitant]
     Indication: HYPERTENSION
     Dosage: 40 MG, QD
     Route: 048
     Dates: start: 2002
  4. BENADRYL                           /00000402/ [Concomitant]
     Indication: PRODUCT USED FOR UNKNOWN INDICATION
  5. MEDROL DOSE PACK [Concomitant]
     Indication: PRODUCT USED FOR UNKNOWN INDICATION
  6. DECONEX [Concomitant]
     Indication: PRODUCT USED FOR UNKNOWN INDICATION
  7. NASONEX NASAL SPRAY [Concomitant]
     Indication: PRODUCT USED FOR UNKNOWN INDICATION
  8. ROCEPHIN                           /00672201/ [Concomitant]
     Indication: PRODUCT USED FOR UNKNOWN INDICATION
  9. XYZAL [Concomitant]
     Indication: PRODUCT USED FOR UNKNOWN INDICATION
  10. AUGMENTIN                          /00756801/ [Concomitant]
     Indication: PRODUCT USED FOR UNKNOWN INDICATION

REACTIONS (13)
  - Swelling face [Recovering/Resolving]
  - Erythema [Recovering/Resolving]
  - Facial pain [Recovering/Resolving]
  - Erythema [Recovering/Resolving]
  - Facial pain [Recovering/Resolving]
  - Swelling face [Recovering/Resolving]
  - Upper-airway cough syndrome [Recovering/Resolving]
  - Oropharyngeal pain [Recovering/Resolving]
  - Rash [Recovered/Resolved]
  - Nasal congestion [Not Recovered/Not Resolved]
  - Dyspnoea [Recovering/Resolving]
  - Sensation of pressure [Not Recovered/Not Resolved]
  - Nasal discomfort [Not Recovered/Not Resolved]
